FAERS Safety Report 10590632 (Version 2)
Quarter: 2015Q1

REPORT INFORMATION
  Report Type: Spontaneous
  Country: BR (occurrence: BR)
  Receive Date: 20141118
  Receipt Date: 20150122
  Transmission Date: 20150720
  Serious: Yes (Hospitalization)
  Sender: FDA-Public Use
  Company Number: BR-PFIZER INC-2014311392

PATIENT
  Age: 66 Year
  Sex: Male

DRUGS (6)
  1. HIGROTON [Concomitant]
     Active Substance: CHLORTHALIDONE
     Dosage: 25
     Dates: start: 2000, end: 201406
  2. SOMALGIN CARDIO [Concomitant]
     Active Substance: ASPIRIN\DIHYDROXYALUMINUM AMINOACETATE ANHYDROUS\MAGNESIUM CARBONATE
     Indication: ANTICOAGULANT THERAPY
     Dosage: 100 MG, 1X/DAY AT LUNCH TIME
     Dates: start: 2000
  3. SOTALOL HYDROCHLORIDE. [Concomitant]
     Active Substance: SOTALOL HYDROCHLORIDE
     Dosage: 80 MG, 2X/DAY
     Dates: start: 201407
  4. SOTALOL HYDROCHLORIDE. [Concomitant]
     Active Substance: SOTALOL HYDROCHLORIDE
     Indication: BLOOD PRESSURE INCREASED
     Dosage: 160 MG, 1X/DAY
     Dates: start: 2009
  5. LIPITOR [Suspect]
     Active Substance: ATORVASTATIN CALCIUM
     Indication: ATHEROSCLEROSIS PROPHYLAXIS
  6. LIPITOR [Suspect]
     Active Substance: ATORVASTATIN CALCIUM
     Indication: BLOOD TRIGLYCERIDES ABNORMAL
     Dosage: 20 MG, DAILY
     Dates: start: 2000

REACTIONS (1)
  - Arrhythmia [Recovered/Resolved]

NARRATIVE: CASE EVENT DATE: 200901
